FAERS Safety Report 13122008 (Version 1)
Quarter: 2017Q1

REPORT INFORMATION
  Report Type: Spontaneous
  Country: US (occurrence: US)
  Receive Date: 20170116
  Receipt Date: 20170116
  Transmission Date: 20170428
  Serious: Yes (Disabling)
  Sender: FDA-Public Use
  Company Number: None

PATIENT
  Age: 44 Year
  Sex: Female
  Weight: 90 kg

DRUGS (2)
  1. LATUDA [Suspect]
     Active Substance: LURASIDONE HYDROCHLORIDE
     Indication: BIPOLAR DISORDER
     Dosage: ?          QUANTITY:1 TABLET(S);?
     Route: 048
     Dates: start: 20161031, end: 20170111
  2. PROCARDIA [Concomitant]
     Active Substance: NIFEDIPINE

REACTIONS (5)
  - Suicidal ideation [None]
  - Depression [None]
  - Impaired work ability [None]
  - Anhedonia [None]
  - Anxiety [None]

NARRATIVE: CASE EVENT DATE: 20170109
